FAERS Safety Report 11828661 (Version 1)
Quarter: 2015Q4

REPORT INFORMATION
  Report Type: Spontaneous
  Country: US (occurrence: US)
  Receive Date: 20151211
  Receipt Date: 20151211
  Transmission Date: 20160305
  Serious: No
  Sender: FDA-Public Use
  Company Number: US-JUBILANT CADISTA PHARMACEUTICALS-2015JUB00189

PATIENT
  Age: 21 Year
  Sex: Female
  Weight: 52.61 kg

DRUGS (10)
  1. METHYLPREDNISOLONE. [Suspect]
     Active Substance: METHYLPREDNISOLONE
     Dosage: 8 MG, ONCE
     Route: 048
     Dates: start: 20150613, end: 20150613
  2. HYDROCODONE [Concomitant]
     Active Substance: HYDROCODONE
     Dosage: 0.5 TABLETS, 1X/DAY
     Dates: start: 20150610, end: 20150611
  3. ACETAMINOPHEN. [Concomitant]
     Active Substance: ACETAMINOPHEN
  4. METHYLPREDNISOLONE. [Suspect]
     Active Substance: METHYLPREDNISOLONE
     Indication: WISDOM TEETH REMOVAL
     Dosage: 24 MG, ONCE
     Route: 048
     Dates: start: 20150609, end: 20150609
  5. AMOXICILLIN. [Suspect]
     Active Substance: AMOXICILLIN
     Dosage: UNK
     Dates: start: 20150609, end: 20150615
  6. METHYLPREDNISOLONE. [Suspect]
     Active Substance: METHYLPREDNISOLONE
     Dosage: 16 MG, ONCE
     Route: 048
     Dates: start: 20150611, end: 20150611
  7. METHYLPREDNISOLONE. [Suspect]
     Active Substance: METHYLPREDNISOLONE
     Dosage: 12 MG, ONCE
     Route: 048
     Dates: start: 20150612, end: 20150612
  8. METHYLPREDNISOLONE. [Suspect]
     Active Substance: METHYLPREDNISOLONE
     Dosage: 4 MG, ONCE
     Route: 048
     Dates: start: 20150614, end: 20150614
  9. METHYLPREDNISOLONE. [Suspect]
     Active Substance: METHYLPREDNISOLONE
     Dosage: 20 MG, ONCE
     Route: 048
     Dates: start: 20150610, end: 20150610
  10. HYDROCODONE [Concomitant]
     Active Substance: HYDROCODONE
     Dosage: 1 TABLETS, 1X/DAY
     Dates: start: 20150612, end: 20150613

REACTIONS (1)
  - Hypersensitivity [Not Recovered/Not Resolved]

NARRATIVE: CASE EVENT DATE: 201506
